FAERS Safety Report 5302035-3 (Version None)
Quarter: 2007Q2

REPORT INFORMATION
  Report Type: 
  Country: None (occurrence: None)
  Receive Date: 20070412
  Receipt Date: 20070327
  Transmission Date: 20071010
  Serious: Yes (Hospitalization)
  Sender: FDA-Public Use
  Company Number: 0610-735

PATIENT
  Age: 6 Hour
  Sex: Male

DRUGS (3)
  1. CUROSURF [Suspect]
     Indication: RESPIRATORY DISTRESS
     Dosage: 240 M.G.
     Dates: start: 20060718
  2. PENICILLIN G [Concomitant]
  3. MORPHINE [Concomitant]

REACTIONS (2)
  - BRADYCARDIA NEONATAL [None]
  - CARDIO-RESPIRATORY ARREST NEONATAL [None]
